FAERS Safety Report 7248341-7 (Version None)
Quarter: 2011Q1

REPORT INFORMATION
  Report Type: 
  Country: None (occurrence: None)
  Receive Date: 20110127
  Receipt Date: 20110120
  Transmission Date: 20110831
  Serious: Yes (Life-Threatening, Other)
  Sender: FDA-Public Use
  Company Number: PHHO2010AU14436

PATIENT
  Sex: Female

DRUGS (1)
  1. GLEEVEC [Suspect]
     Indication: SYNOVITIS
     Dosage: 400 MG, UNK
     Route: 048
     Dates: start: 20100203, end: 20100303

REACTIONS (4)
  - VOMITING [None]
  - NAUSEA [None]
  - NEUTROPENIC SEPSIS [None]
  - DIARRHOEA [None]
